FAERS Safety Report 24017797 (Version 2)
Quarter: 2024Q3

REPORT INFORMATION
  Report Type: Spontaneous
  Country: VN (occurrence: VN)
  Receive Date: 20240627
  Receipt Date: 20240712
  Transmission Date: 20241016
  Serious: Yes (Life-Threatening, Other)
  Sender: AMGEN
  Company Number: VN-AMGEN-VNMSP2024125843

PATIENT
  Age: 47 Year
  Sex: Male

DRUGS (7)
  1. MVASI [Suspect]
     Active Substance: BEVACIZUMAB-AWWB
     Indication: Rectal cancer
     Dosage: UNK (4 CYCLES)
     Route: 042
     Dates: start: 202311
  2. MVASI [Suspect]
     Active Substance: BEVACIZUMAB-AWWB
     Dosage: UNK (8 CYCLES)
     Route: 042
     Dates: end: 202402
  3. LEUCOVORIN [Concomitant]
     Active Substance: LEUCOVORIN\LEUCOVORIN CALCIUM
  4. FLUOROURACIL [Concomitant]
     Active Substance: FLUOROURACIL
  5. IRINOTECAN [Concomitant]
     Active Substance: IRINOTECAN
  6. OXALIPLATIN [Concomitant]
     Active Substance: OXALIPLATIN
  7. FLUOROURACIL\IRINOTECAN\LEUCOVORIN\OXALIPLATIN [Concomitant]
     Active Substance: FLUOROURACIL\IRINOTECAN\LEUCOVORIN\OXALIPLATIN
     Indication: Rectal cancer
     Dosage: UNK

REACTIONS (2)
  - Rectal cancer [Unknown]
  - Metastases to liver [Unknown]

NARRATIVE: CASE EVENT DATE: 20231130
